FAERS Safety Report 18607592 (Version 1)
Quarter: 2020Q4

REPORT INFORMATION
  Report Type: Spontaneous
  Country: US (occurrence: US)
  Receive Date: 20201211
  Receipt Date: 20201211
  Transmission Date: 20210114
  Serious: Yes (Other)
  Sender: FDA-Public Use
  Company Number: US-SA-2020SA351460

PATIENT

DRUGS (1)
  1. LANTUS SOLOSTAR [Suspect]
     Active Substance: INSULIN GLARGINE
     Indication: DIABETES MELLITUS
     Dosage: 10 IU, QD (EVENING)
     Route: 065
     Dates: start: 202011

REACTIONS (7)
  - Needle issue [Unknown]
  - Device operational issue [Unknown]
  - Blood glucose increased [Unknown]
  - Blindness [Unknown]
  - Memory impairment [Unknown]
  - Injection site extravasation [Unknown]
  - Cataract [Unknown]

NARRATIVE: CASE EVENT DATE: 2020
